FAERS Safety Report 5213038-1 (Version None)
Quarter: 2007Q1

REPORT INFORMATION
  Report Type: 
  Country: None (occurrence: None)
  Receive Date: 20070119
  Receipt Date: 20070108
  Transmission Date: 20070707
  Serious: Yes (Hospitalization)
  Sender: FDA-Public Use
  Company Number: FR-BRISTOL-MYERS SQUIBB COMPANY-13643085

PATIENT
  Age: 34 Year
  Sex: Female

DRUGS (4)
  1. ENDOXAN [Suspect]
     Indication: BREAST CANCER
     Route: 042
     Dates: start: 20060829, end: 20060829
  2. TAXOL [Suspect]
     Indication: BREAST CANCER
     Route: 042
     Dates: start: 20061114, end: 20061114
  3. FARMORUBICINE [Suspect]
     Indication: BREAST CANCER
     Dates: start: 20060829, end: 20060829
  4. FLUOROURACIL [Suspect]
     Indication: BREAST CANCER
     Route: 042
     Dates: start: 20060829, end: 20060829

REACTIONS (5)
  - CAESAREAN SECTION [None]
  - FOETAL HEART RATE ABNORMAL [None]
  - GASTROINTESTINAL DISORDER [None]
  - NORMAL NEWBORN [None]
  - PREGNANCY [None]
